FAERS Safety Report 4508023-9 (Version None)
Quarter: 2004Q4

REPORT INFORMATION
  Report Type: 
  Country: None (occurrence: None)
  Receive Date: 20041123
  Receipt Date: 20020225
  Transmission Date: 20050328
  Serious: No
  Sender: FDA-Public Use
  Company Number: US-GLAXOSMITHKLINE-A0360153A

PATIENT
  Age: 59 Year
  Sex: Male

DRUGS (7)
  1. WELLBUTRIN [Suspect]
     Indication: POST-TRAUMATIC STRESS DISORDER
     Dosage: 150MG TWICE PER DAY
     Route: 048
  2. PAXIL [Suspect]
     Indication: POST-TRAUMATIC STRESS DISORDER
     Dosage: 60MG PER DAY
     Route: 048
     Dates: end: 20020201
  3. VALIUM [Concomitant]
     Dosage: 10MG TWICE PER DAY
  4. PREVACID [Concomitant]
  5. NEXIUM [Concomitant]
  6. PERCOCET [Concomitant]
  7. DONNATAL [Concomitant]

REACTIONS (5)
  - ANXIETY [None]
  - DEPRESSION [None]
  - DRUG WITHDRAWAL SYNDROME [None]
  - GASTRITIS [None]
  - PANIC ATTACK [None]
